FAERS Safety Report 11680535 (Version 2)
Quarter: 2015Q4

REPORT INFORMATION
  Report Type: Spontaneous
  Country: US (occurrence: US)
  Receive Date: 20151027
  Receipt Date: 20151104
  Transmission Date: 20160304
  Serious: No
  Sender: FDA-Public Use
  Company Number: US-ELI_LILLY_AND_COMPANY-US201009004554

PATIENT
  Sex: Female

DRUGS (4)
  1. FORTEO [Suspect]
     Active Substance: TERIPARATIDE
     Indication: OSTEOPOROSIS
     Dosage: 20 UG, DAILY (1/D)
     Dates: start: 20100827
  2. FORTEO [Suspect]
     Active Substance: TERIPARATIDE
     Dosage: 20 UG, DAILY (1/D)
  3. FORTEO [Suspect]
     Active Substance: TERIPARATIDE
     Dosage: 20 UG, DAILY (1/D)
  4. FORTEO [Suspect]
     Active Substance: TERIPARATIDE
     Dosage: 20 UG, QD

REACTIONS (15)
  - Tremor [Unknown]
  - Hypersomnia [Unknown]
  - Dysgraphia [Unknown]
  - Nervousness [Unknown]
  - Rectal haemorrhage [Unknown]
  - Peripheral swelling [Unknown]
  - Tremor [Not Recovered/Not Resolved]
  - Feeling abnormal [Unknown]
  - Gait disturbance [Unknown]
  - Intentional product misuse [Unknown]
  - Movement disorder [Unknown]
  - General physical health deterioration [Unknown]
  - Muscular weakness [Unknown]
  - Bone disorder [Unknown]
  - Pain in extremity [Unknown]
